FAERS Safety Report 6604252-9 (Version None)
Quarter: 2010Q1

REPORT INFORMATION
  Report Type: 
  Country: None (occurrence: None)
  Receive Date: 20100226
  Receipt Date: 20090717
  Transmission Date: 20100710
  Serious: No
  Sender: FDA-Public Use
  Company Number: A0798322A

PATIENT
  Age: 14 Year
  Sex: Female

DRUGS (2)
  1. LAMICTAL CD [Suspect]
     Route: 048
  2. UNKNOWN [Concomitant]

REACTIONS (1)
  - DECREASED APPETITE [None]
